FAERS Safety Report 10904228 (Version 1)
Quarter: 2015Q1

REPORT INFORMATION
  Report Type: Spontaneous
  Country: US (occurrence: None)
  Receive Date: 20150306
  Receipt Date: 20150306
  Transmission Date: 20150721
  Serious: Yes (Hospitalization)
  Sender: FDA-Public Use
  Company Number: INS201405-000080

PATIENT
  Age: 60 Year
  Sex: Female
  Weight: 68.03 kg

DRUGS (10)
  1. SUBSYS [Suspect]
     Active Substance: FENTANYL
     Indication: FIBROMYALGIA
     Dosage: 100 MCG??
  2. SUBSYS [Suspect]
     Active Substance: FENTANYL
     Indication: RHEUMATOID ARTHRITIS
     Dosage: 100 MCG??
  3. VITAMIN B12 (CABALAMIN) [Concomitant]
  4. OXYCODONE [Concomitant]
     Active Substance: OXYCODONE
  5. TRAZODONE [Concomitant]
     Active Substance: TRAZODONE HYDROCHLORIDE
  6. FENTANYL PATCH (FENTANYL) [Concomitant]
  7. VITAMIN D (CHOLECALCIFEROL) [Concomitant]
  8. XANAX [Concomitant]
     Active Substance: ALPRAZOLAM
  9. HYDROXYCHLOROQUINE [Concomitant]
     Active Substance: HYDROXYCHLOROQUINE
  10. CYMBALTA [Concomitant]
     Active Substance: DULOXETINE HYDROCHLORIDE

REACTIONS (8)
  - Emphysema [None]
  - Dysgeusia [None]
  - Weight decreased [None]
  - Chronic obstructive pulmonary disease [None]
  - Malaise [None]
  - Condition aggravated [None]
  - Burning sensation [None]
  - Pain [None]

NARRATIVE: CASE EVENT DATE: 201412
